FAERS Safety Report 10149223 (Version 1)
Quarter: 2014Q2

REPORT INFORMATION
  Report Type: Spontaneous
  Country: US (occurrence: US)
  Receive Date: 20140502
  Receipt Date: 20140502
  Transmission Date: 20141212
  Serious: No
  Sender: FDA-Public Use
  Company Number: US-B.I. PHARMACEUTICALS,INC./RIDGEFIELD-2014-BI-18648BP

PATIENT
  Age: 77 Year
  Sex: Female

DRUGS (5)
  1. PRADAXA [Suspect]
     Indication: CEREBROVASCULAR ACCIDENT PROPHYLAXIS
     Dosage: 300 MG
     Route: 048
     Dates: start: 201106
  2. PRADAXA [Suspect]
     Indication: ATRIAL FIBRILLATION
  3. ANTIHYPERTENSIVE [Concomitant]
     Indication: HYPERTENSION
     Route: 065
  4. STATIN [Concomitant]
     Indication: BLOOD CHOLESTEROL INCREASED
     Route: 065
  5. EYE DROPS [Concomitant]
     Indication: GLAUCOMA
     Route: 065

REACTIONS (1)
  - Epistaxis [Recovered/Resolved]
